FAERS Safety Report 6947214-4 (Version None)
Quarter: 2010Q3

REPORT INFORMATION
  Report Type: 
  Country: None (occurrence: None)
  Receive Date: 20100827
  Receipt Date: 20090909
  Transmission Date: 20110219
  Serious: No
  Sender: FDA-Public Use
  Company Number: US-ABBOTT-09P-163-0596051-00

PATIENT
  Sex: Male

DRUGS (6)
  1. NIASPAN [Suspect]
     Indication: BLOOD TRIGLYCERIDES INCREASED
     Dosage: DAILY AT BEDTIME
     Route: 048
  2. NIACIN [Suspect]
     Indication: BLOOD TRIGLYCERIDES INCREASED
  3. PRILOSEC [Concomitant]
     Indication: PRODUCT USED FOR UNKNOWN INDICATION
  4. MULTIPLE OTHER MEDICATIONS [Concomitant]
     Indication: PRODUCT USED FOR UNKNOWN INDICATION
  5. AMARYL [Concomitant]
     Indication: DIABETES PROPHYLAXIS
  6. UNKNOWN HYPERTENSION MEDICATION [Concomitant]
     Indication: HYPERTENSION

REACTIONS (2)
  - FLUSHING [None]
  - HYPERHIDROSIS [None]
